FAERS Safety Report 5965230-6 (Version None)
Quarter: 2008Q4

REPORT INFORMATION
  Report Type: 
  Country: None (occurrence: None)
  Receive Date: 20081125
  Receipt Date: 20080219
  Transmission Date: 20090506
  Serious: No
  Sender: FDA-Public Use
  Company Number: US-AMGEN-US265961

PATIENT
  Sex: Female

DRUGS (2)
  1. ENBREL [Suspect]
     Indication: RHEUMATOID ARTHRITIS
     Route: 065
     Dates: start: 20080213
  2. DESONIDE [Suspect]
     Route: 065
     Dates: start: 20080214, end: 20080217

REACTIONS (3)
  - INSOMNIA [None]
  - PRURITUS GENERALISED [None]
  - RASH MACULAR [None]
